FAERS Safety Report 8789209 (Version 1)
Quarter: 2012Q4

REPORT INFORMATION
  Report Type: Spontaneous
  Country: US (occurrence: None)
  Receive Date: 20120910
  Receipt Date: 20120910
  Transmission Date: 20130627
  Serious: No
  Sender: FDA-Public Use
  Company Number: None

PATIENT
  Age: 5 Year
  Sex: Female
  Weight: 19.96 kg

DRUGS (1)
  1. CHILDREN^S ZYRTEC [Suspect]
     Indication: SEASONAL ALLERGY
     Dosage: one teaspoon once a day po
     Route: 048
     Dates: start: 20120801, end: 20120908

REACTIONS (1)
  - Hallucination, visual [None]
